FAERS Safety Report 24612807 (Version 3)
Quarter: 2025Q1

REPORT INFORMATION
  Report Type: Spontaneous
  Country: US (occurrence: US)
  Receive Date: 20241113
  Receipt Date: 20250113
  Transmission Date: 20250408
  Serious: Yes (Other)
  Sender: PFIZER
  Company Number: US-PFIZER INC-202400299148

PATIENT
  Age: 37 Year
  Sex: Female

DRUGS (1)
  1. XELJANZ XR [Suspect]
     Active Substance: TOFACITINIB CITRATE
     Dates: start: 202409

REACTIONS (4)
  - Colporrhaphy [Not Recovered/Not Resolved]
  - Vaginal operation [Not Recovered/Not Resolved]
  - Urinary bladder suspension [Not Recovered/Not Resolved]
  - Pain [Not Recovered/Not Resolved]
